FAERS Safety Report 7550527-9 (Version None)
Quarter: 2011Q2

REPORT INFORMATION
  Report Type: 
  Country: None (occurrence: None)
  Receive Date: 20110615
  Receipt Date: 20110415
  Transmission Date: 20111010
  Serious: Yes (Hospitalization, Other)
  Sender: FDA-Public Use
  Company Number: US-MYLANLABS-2011S1007878

PATIENT
  Age: 64 Year
  Sex: Female

DRUGS (22)
  1. KLOR-CON [Concomitant]
  2. AZATHIOPRINE [Suspect]
     Dates: start: 20110302, end: 20110304
  3. ENALAPRIL MALEATE [Suspect]
     Indication: BLOOD PRESSURE
  4. AZATHIOPRINE [Suspect]
     Indication: LUNG TRANSPLANT
     Dates: start: 20110215, end: 20110302
  5. DILTIAZEM [Concomitant]
     Indication: ANGINA PECTORIS
  6. HYDROCHLOROTHIAZIDE [Concomitant]
  7. AZATHIOPRINE [Suspect]
     Dates: start: 20110315, end: 20110315
  8. SALSALATE [Concomitant]
  9. LEVOXYL [Concomitant]
  10. PLAVIX [Concomitant]
  11. ASPIRIN [Concomitant]
  12. FISH OIL [Concomitant]
  13. PRAVASTATIN [Concomitant]
  14. ACETYLCYSTEINE [Concomitant]
     Dosage: 3 MLS BID
  15. GABAPENTIN [Concomitant]
  16. PREDNISONE [Concomitant]
  17. VITAMIN B-12 [Concomitant]
  18. M.V.I. [Concomitant]
  19. XANAX [Concomitant]
  20. PRISTIQ [Concomitant]
  21. TIZANIDINE HCL [Concomitant]
  22. VITAMIN C + E [Concomitant]

REACTIONS (13)
  - CONTUSION [None]
  - URINARY INCONTINENCE [None]
  - URINARY TRACT INFECTION [None]
  - LOSS OF CONSCIOUSNESS [None]
  - FALL [None]
  - FACIAL BONES FRACTURE [None]
  - MALAISE [None]
  - DIZZINESS [None]
  - POTENTIATING DRUG INTERACTION [None]
  - MUSCULAR WEAKNESS [None]
  - PYREXIA [None]
  - NAUSEA [None]
  - VOMITING [None]
